FAERS Safety Report 4837772-8 (Version None)
Quarter: 2005Q4

REPORT INFORMATION
  Report Type: 
  Country: None (occurrence: None)
  Receive Date: 20051123
  Receipt Date: 20051123
  Transmission Date: 20060501
  Serious: Yes (Hospitalization, Other)
  Sender: FDA-Public Use
  Company Number: None

PATIENT
  Sex: Male
  Weight: 158 kg

DRUGS (2)
  1. GEMCITABINE [Suspect]
     Indication: PANCREATIC CARCINOMA
     Dosage: SEE IMAGE
     Route: 042
     Dates: start: 20050929, end: 20050929
  2. GEMCITABINE [Suspect]
     Indication: PANCREATIC CARCINOMA
     Dosage: SEE IMAGE
     Route: 042
     Dates: start: 20051113

REACTIONS (4)
  - COMPUTERISED TOMOGRAM ABNORMAL [None]
  - DISEASE PROGRESSION [None]
  - LUNG NEOPLASM [None]
  - PULMONARY EMBOLISM [None]
